FAERS Safety Report 19911321 (Version 1)
Quarter: 2021Q3

REPORT INFORMATION
  Report Type: Spontaneous
  Country: US (occurrence: US)
  Receive Date: 20210930
  Receipt Date: 20210930
  Transmission Date: 20211014
  Serious: Yes (Disabling)
  Sender: FDA-Public Use
  Company Number: None

PATIENT
  Age: 69 Year
  Sex: Female
  Weight: 77.11 kg

DRUGS (1)
  1. BENZOIN [Suspect]
     Active Substance: ALOE\BENZOIN\LIQUIDAMBAR STYRACIFLUA RESIN\TOLU BALSAM
     Indication: SPINAL PAIN
     Dates: start: 20210824, end: 20210826

REACTIONS (4)
  - Urticaria [None]
  - Application site pruritus [None]
  - Blister [None]
  - Skin weeping [None]

NARRATIVE: CASE EVENT DATE: 20210824
